FAERS Safety Report 7963842-1 (Version None)
Quarter: 2011Q4

REPORT INFORMATION
  Report Type: 
  Country: None (occurrence: None)
  Receive Date: 20111208
  Receipt Date: 20111128
  Transmission Date: 20120403
  Serious: Yes (Hospitalization)
  Sender: FDA-Public Use
  Company Number: US-BAYER-2011-045267

PATIENT
  Age: 25 Year
  Sex: Female
  Weight: 108.57 kg

DRUGS (3)
  1. YASMIN [Suspect]
     Indication: CONTRACEPTION
     Dosage: UNK
     Route: 048
     Dates: start: 20060901, end: 20071201
  2. SPIRONOLACTONE [Concomitant]
  3. RANITIDINE [Concomitant]

REACTIONS (5)
  - CHOLECYSTITIS ACUTE [None]
  - INJURY [None]
  - GALLBLADDER INJURY [None]
  - PAIN [None]
  - GALLBLADDER DISORDER [None]
